FAERS Safety Report 8403244-7 (Version None)
Quarter: 2012Q2

REPORT INFORMATION
  Report Type: 
  Country: None (occurrence: None)
  Receive Date: 20120601
  Receipt Date: 20120524
  Transmission Date: 20120825
  Serious: Yes (Hospitalization, Disabling)
  Sender: FDA-Public Use
  Company Number: US-MERCK-1112USA01239

PATIENT
  Age: 54 Year
  Sex: Female

DRUGS (9)
  1. OMEGA-3 MARINE TRIGLYCERIDES [Concomitant]
     Route: 048
  2. ASCORBIC ACID [Concomitant]
     Route: 048
     Dates: start: 19980101
  3. CALCIUM (UNSPECIFIED) [Concomitant]
     Route: 048
     Dates: start: 19980101
  4. FOSAMAX [Suspect]
     Indication: OSTEOPOROSIS
     Route: 048
     Dates: start: 19981116, end: 20061222
  5. VITAMINS (UNSPECIFIED) [Concomitant]
     Route: 048
  6. VITAMIN D (UNSPECIFIED) [Concomitant]
     Route: 048
     Dates: start: 19980101
  7. ACTONEL [Suspect]
     Indication: OSTEOPOROSIS
     Route: 048
     Dates: start: 20061221, end: 20110116
  8. FOSAMAX [Suspect]
     Indication: OSTEOPENIA
     Route: 048
     Dates: start: 19981116, end: 20061222
  9. ACTONEL [Suspect]
     Indication: OSTEOPENIA
     Route: 048
     Dates: start: 20061221, end: 20110116

REACTIONS (7)
  - HYPERTENSION [None]
  - BUNION [None]
  - PATHOLOGICAL FRACTURE [None]
  - HYPERSENSITIVITY [None]
  - DEPRESSION [None]
  - FOOT DEFORMITY [None]
  - TENDON INJURY [None]
